FAERS Safety Report 17286298 (Version 1)
Quarter: 2020Q1

REPORT INFORMATION
  Report Type: Report from Study
  Country: US (occurrence: US)
  Receive Date: 20200118
  Receipt Date: 20200118
  Transmission Date: 20200409
  Serious: No
  Sender: FDA-Public Use
  Company Number: NVSC2020US009377

PATIENT
  Age: 48 Year
  Sex: Female

DRUGS (2)
  1. COSENTYX [Suspect]
     Active Substance: SECUKINUMAB
     Indication: FIBROMYALGIA
  2. COSENTYX [Suspect]
     Active Substance: SECUKINUMAB
     Indication: OSTEOARTHRITIS
     Dosage: 150 MG, Q4W
     Route: 058

REACTIONS (2)
  - Product use in unapproved indication [Unknown]
  - Abdominal discomfort [Unknown]
